FAERS Safety Report 20164425 (Version 1)
Quarter: 2021Q4

REPORT INFORMATION
  Report Type: Spontaneous
  Country: US (occurrence: US)
  Receive Date: 20211209
  Receipt Date: 20211209
  Transmission Date: 20220303
  Serious: No
  Sender: FDA-Public Use
  Company Number: US-ELI_LILLY_AND_COMPANY-US202111006112

PATIENT
  Sex: Male

DRUGS (4)
  1. TRULICITY [Suspect]
     Active Substance: DULAGLUTIDE
     Indication: Product used for unknown indication
     Dosage: UNK UNK, UNKNOWN
     Route: 065
  2. METFORMIN [Suspect]
     Active Substance: METFORMIN HYDROCHLORIDE
     Indication: Product used for unknown indication
     Dosage: 500 MG, EACH EVENING (EVERU NIGHT)
     Route: 065
  3. GLIPIZIDE [Suspect]
     Active Substance: GLIPIZIDE
     Indication: Product used for unknown indication
     Dosage: 10 MG, EACH MORNING
     Route: 065
  4. DOXYCYCLINE [Concomitant]
     Active Substance: DOXYCYCLINE
     Indication: Product used for unknown indication

REACTIONS (8)
  - Diabetic neuropathy [Unknown]
  - Weight decreased [Unknown]
  - Weight increased [Unknown]
  - Abdominal distension [Unknown]
  - Decreased appetite [Unknown]
  - Gastrointestinal disorder [Unknown]
  - Eructation [Unknown]
  - Dyspepsia [Unknown]
